FAERS Safety Report 14881732 (Version 3)
Quarter: 2018Q2

REPORT INFORMATION
  Report Type: Report from Study
  Country: JP (occurrence: JP)
  Receive Date: 20180511
  Receipt Date: 20180523
  Transmission Date: 20180711
  Serious: Yes (Hospitalization)
  Sender: FDA-Public Use
  Company Number: JP-EISAI MEDICAL RESEARCH-EC-2018-039650

PATIENT
  Age: 62 Year
  Sex: Female
  Weight: 55 kg

DRUGS (3)
  1. HALAVEN [Suspect]
     Active Substance: ERIBULIN MESYLATE
     Route: 041
     Dates: start: 20180517
  2. E KEPPRA [Concomitant]
     Active Substance: LEVETIRACETAM
  3. HALAVEN [Suspect]
     Active Substance: ERIBULIN MESYLATE
     Indication: GLIOBLASTOMA
     Route: 041
     Dates: start: 20180426, end: 2018

REACTIONS (1)
  - Neutropenia [Recovered/Resolved]

NARRATIVE: CASE EVENT DATE: 20180508
